FAERS Safety Report 6075286-0 (Version None)
Quarter: 2009Q1

REPORT INFORMATION
  Report Type: 
  Country: None (occurrence: None)
  Receive Date: 20090212
  Receipt Date: 20090209
  Transmission Date: 20090719
  Serious: Yes (Life-Threatening, Other)
  Sender: FDA-Public Use
  Company Number: PHHY2009BR04662

PATIENT
  Sex: Male
  Weight: 63 kg

DRUGS (2)
  1. EXELON [Suspect]
     Indication: DEMENTIA
     Dosage: 9MG/ 5CM2, QD
     Route: 062
  2. EXELON [Suspect]
     Dosage: 18 MG/10CM2, QD
     Route: 062

REACTIONS (15)
  - BLOOD PRESSURE SYSTOLIC INCREASED [None]
  - DECREASED APPETITE [None]
  - DEPRESSION [None]
  - DIARRHOEA [None]
  - GENERAL PHYSICAL HEALTH DETERIORATION [None]
  - INSOMNIA [None]
  - MALAISE [None]
  - MUSCULAR WEAKNESS [None]
  - NAUSEA [None]
  - NECK PAIN [None]
  - NEGATIVISM [None]
  - RETCHING [None]
  - TREMOR [None]
  - VOMITING [None]
  - WEIGHT DECREASED [None]
